FAERS Safety Report 7010831-X (Version None)
Quarter: 2010Q3

REPORT INFORMATION
  Report Type: 
  Country: None (occurrence: None)
  Receive Date: 20100923
  Receipt Date: 20100923
  Transmission Date: 20110219
  Serious: Yes (Hospitalization)
  Sender: FDA-Public Use
  Company Number: None

PATIENT
  Sex: Female
  Weight: 60 kg

DRUGS (2)
  1. ERBITUX [Suspect]
     Dosage: 403 MG
  2. CISPLATIN [Suspect]
     Dosage: 48 MG

REACTIONS (3)
  - DIARRHOEA [None]
  - DYSURIA [None]
  - URINARY TRACT INFECTION [None]
